FAERS Safety Report 22318677 (Version 5)
Quarter: 2025Q3

REPORT INFORMATION
  Report Type: Spontaneous
  Country: EU (occurrence: EU)
  Receive Date: 20230515
  Receipt Date: 20250707
  Transmission Date: 20251020
  Serious: Yes (Other)
  Sender: AUROBINDO
  Company Number: EU-MYLANLABS-2023M1045351

PATIENT
  Age: 11 Year
  Sex: Female

DRUGS (5)
  1. LEVETIRACETAM [Suspect]
     Active Substance: LEVETIRACETAM
     Indication: Posterior reversible encephalopathy syndrome
     Route: 065
  2. ENALAPRIL [Suspect]
     Active Substance: ENALAPRIL
     Indication: Left ventricular hypertrophy
     Dosage: 0.1 MILLIGRAM/KILOGRAM, ONCE A DAY
     Route: 065
  3. ENALAPRIL [Suspect]
     Active Substance: ENALAPRIL
     Indication: Tricuspid valve incompetence
     Dosage: 0.5 MILLIGRAM/KILOGRAM, ONCE A DAY
     Route: 065
  4. ENALAPRIL [Suspect]
     Active Substance: ENALAPRIL
     Indication: Mitral valve incompetence
     Dosage: 0.4 MILLIGRAM/KILOGRAM, ONCE A DAY
     Route: 065
  5. AMLODIPINE [Concomitant]
     Active Substance: AMLODIPINE BESYLATE
     Indication: Product used for unknown indication
     Dosage: 0.1 MILLIGRAM/KILOGRAM, ONCE A DAY
     Route: 065

REACTIONS (3)
  - Hypertensive crisis [Unknown]
  - Product use issue [Unknown]
  - Off label use [Unknown]
